FAERS Safety Report 21518221 (Version 1)
Quarter: 2022Q4

REPORT INFORMATION
  Report Type: Spontaneous
  Country: US (occurrence: US)
  Receive Date: 20221028
  Receipt Date: 20221028
  Transmission Date: 20230113
  Serious: Yes (Other)
  Sender: FDA-Public Use
  Company Number: US-NEBO-PC009267

PATIENT
  Age: 76 Year
  Sex: Female

DRUGS (1)
  1. MONOFERRIC [Suspect]
     Active Substance: FERRIC DERISOMALTOSE
     Indication: Iron deficiency anaemia
     Route: 050
     Dates: start: 20220816, end: 20220816

REACTIONS (7)
  - Unresponsive to stimuli [Unknown]
  - Dyspnoea [Unknown]
  - Seizure like phenomena [Unknown]
  - Oxygen saturation decreased [Unknown]
  - Tachycardia [Unknown]
  - Hypertension [Unknown]
  - Angioedema [Unknown]

NARRATIVE: CASE EVENT DATE: 20220816
